FAERS Safety Report 8888051 (Version 1)
Quarter: 2012Q4

REPORT INFORMATION
  Report Type: 
  Country: US (occurrence: None)
  Receive Date: 20121101
  Receipt Date: 20121101
  Transmission Date: 20130627
  Serious: Yes (Death, Hospitalization)
  Sender: FDA-Public Use
  Company Number: None

PATIENT
  Sex: Female
  Weight: 13.5 kg

DRUGS (6)
  1. DOXORUBICIN HYDROCHLORIDE [Suspect]
  2. ETOPOSIDE [Suspect]
  3. MESNA [Suspect]
  4. VINCRISTINE SULFATE [Suspect]
  5. CARBOPLATIN [Suspect]
  6. CYCLOPHOSPHAMIDE [Suspect]

REACTIONS (5)
  - Respiratory distress [None]
  - Pneumothorax [None]
  - Pulmonary hypertension [None]
  - Heart rate irregular [None]
  - Cytology abnormal [None]
